FAERS Safety Report 13513937 (Version 2)
Quarter: 2017Q2

REPORT INFORMATION
  Report Type: Spontaneous
  Country: US (occurrence: US)
  Receive Date: 20170504
  Receipt Date: 20170517
  Transmission Date: 20170830
  Serious: No
  Sender: FDA-Public Use
  Company Number: US-PFIZER INC-2017188516

PATIENT
  Age: 81 Year
  Sex: Female
  Weight: 61.23 kg

DRUGS (1)
  1. LATANOPROST. [Suspect]
     Active Substance: LATANOPROST
     Dosage: 1 DROP IN EACH EYE AT BEDTIME
     Dates: start: 201704

REACTIONS (3)
  - Ocular hyperaemia [Unknown]
  - Drug ineffective [Unknown]
  - Eye pain [Not Recovered/Not Resolved]
